FAERS Safety Report 13006277 (Version 1)
Quarter: 2016Q4

REPORT INFORMATION
  Report Type: Spontaneous
  Country: US (occurrence: US)
  Receive Date: 20161207
  Receipt Date: 20161207
  Transmission Date: 20170207
  Serious: No
  Sender: FDA-Public Use
  Company Number: None

PATIENT

DRUGS (1)
  1. METHYLPHENIDATE ER [Suspect]
     Active Substance: METHYLPHENIDATE

REACTIONS (5)
  - Drug prescribing error [None]
  - Underdose [None]
  - Overdose [None]
  - Drug dispensing error [None]
  - Product label confusion [None]
